FAERS Safety Report 7452827-X (Version None)
Quarter: 2011Q2

REPORT INFORMATION
  Report Type: 
  Country: None (occurrence: None)
  Receive Date: 20110502
  Receipt Date: 20110321
  Transmission Date: 20111010
  Serious: Yes (Hospitalization, Other)
  Sender: FDA-Public Use
  Company Number: US-BAYER-2010-002127

PATIENT
  Age: 27 Year
  Sex: Female
  Weight: 113.38 kg

DRUGS (1)
  1. YAZ [Suspect]
     Indication: PRODUCT USED FOR UNKNOWN INDICATION

REACTIONS (4)
  - GALLBLADDER INJURY [None]
  - CHOLECYSTECTOMY [None]
  - THROMBOSIS [None]
  - INJURY [None]
